FAERS Safety Report 17799630 (Version 2)
Quarter: 2020Q2

REPORT INFORMATION
  Report Type: Spontaneous
  Country: GB (occurrence: GB)
  Receive Date: 20200518
  Receipt Date: 20200527
  Transmission Date: 20200714
  Serious: Yes (Other)
  Sender: FDA-Public Use
  Company Number: GB-PFIZER INC-2020192003

PATIENT
  Age: 73 Year
  Sex: Male
  Weight: 64 kg

DRUGS (11)
  1. ATORVASTATIN [Concomitant]
     Active Substance: ATORVASTATIN
     Indication: DRUG THERAPY
     Dosage: 40 MG, 1X/DAY, PO, OD
     Route: 048
  2. GEMCITABINE HYDROCHLORIDE. [Suspect]
     Active Substance: GEMCITABINE HYDROCHLORIDE
     Indication: PANCREATIC CARCINOMA
     Dosage: 1900 MG 1, 8 AND 15TH DAY
     Route: 042
     Dates: start: 20200312
  3. LANSOPRAZOLE. [Concomitant]
     Active Substance: LANSOPRAZOLE
     Indication: DRUG THERAPY
     Dosage: 30 MG, 1X/DAY
     Route: 065
  4. BACTERIOSTATIC SODIUM CHLORIDE [Suspect]
     Active Substance: SODIUM CHLORIDE
     Indication: MEDICATION DILUTION
     Dosage: 250 ML, 1, 8 AND 15TH DAY
     Route: 042
     Dates: start: 20200312
  5. BISOPROLOL [Concomitant]
     Active Substance: BISOPROLOL
     Indication: PRODUCT USED FOR UNKNOWN INDICATION
     Dosage: 1.25 MG, 1X/DAY OD
     Route: 048
  6. GLICLAZIDE [Concomitant]
     Active Substance: GLICLAZIDE
     Indication: DIABETES MELLITUS
     Dosage: 80 MG, 1X/DAY, BD
     Route: 048
  7. BACTERIOSTATIC SODIUM CHLORIDE [Suspect]
     Active Substance: SODIUM CHLORIDE
     Indication: CATHETER MANAGEMENT
     Dosage: IV FLUSH OVER 30 MIN 1, 8 AND 15TH DAY, 0.9% SODIUM CHLORIDE
     Route: 042
     Dates: start: 20200312
  8. ABRAXANE [Suspect]
     Active Substance: PACLITAXEL
     Indication: PANCREATIC CARCINOMA
     Dosage: 225 MG, 1, 8 AND 15TH DAY (NAB-PACLITAXEL)
     Route: 042
     Dates: start: 20200312
  9. ASPIRIN [ACETYLSALICYLIC ACID] [Concomitant]
     Active Substance: ASPIRIN
     Dosage: 75 MG, 1X/DAY
     Route: 048
  10. CREON [Concomitant]
     Active Substance: PANCRELIPASE AMYLASE\PANCRELIPASE LIPASE\PANCRELIPASE PROTEASE
     Indication: PANCREATIC FAILURE
     Dosage: 25000 CAPSULES, 1 TO 4 TIMES WITH MEALS OR SNACKS
     Route: 065
  11. TICAGRELOR. [Concomitant]
     Active Substance: TICAGRELOR
     Indication: ANTIPLATELET THERAPY
     Dosage: 180 MG, 1X/DAY, PO, BD
     Route: 048

REACTIONS (2)
  - Thrombophlebitis [Unknown]
  - Catheter site cellulitis [Recovered/Resolved with Sequelae]

NARRATIVE: CASE EVENT DATE: 202003
